FAERS Safety Report 3974835 (Version 2)
Quarter: 2014Q3

REPORT INFORMATION
  Report Type: Spontaneous
  Country: ES (occurrence: ES)
  Receive Date: 20030716
  Receipt Date: 20140829
  Transmission Date: 20150326
  Serious: Yes (Hospitalization)
  Sender: FDA-Public Use
  Company Number: PHBS2003ES06998

PATIENT
  Age: 58 Year
  Sex: Female

DRUGS (1)
  1. IMATINIB [Suspect]
     Active Substance: IMATINIB
     Indication: CHRONIC MYELOID LEUKAEMIA
     Dosage: 400 MG, PER DAY
     Dates: start: 200106

REACTIONS (5)
  - Vomiting [Unknown]
  - Urine output decreased [Unknown]
  - Nausea [Unknown]
  - Renal failure acute [Recovering/Resolving]
  - Renal tubular necrosis [Unknown]
